FAERS Safety Report 13378285 (Version 1)
Quarter: 2017Q1

REPORT INFORMATION
  Report Type: Spontaneous
  Country: IN (occurrence: IN)
  Receive Date: 20170328
  Receipt Date: 20170328
  Transmission Date: 20170429
  Serious: Yes (Other)
  Sender: FDA-Public Use
  Company Number: IN-MYLANLABS-2017M1018618

PATIENT

DRUGS (4)
  1. POTASSIUM [Suspect]
     Active Substance: POTASSIUM
     Indication: DIABETIC KETOACIDOSIS
     Dosage: 40MEQ/L
     Route: 040
  2. SODIUM CHLORIDE. [Suspect]
     Active Substance: SODIUM CHLORIDE
     Dosage: 100 ML/KG: DOSE (ADMINISTERED OVER 48 HOURS) MAINTENANCE FLUID- VOLUME OF ANTECEDENT FLUID BOLUS
     Route: 040
  3. INSULIN [Concomitant]
     Active Substance: INSULIN NOS
     Indication: DIABETIC KETOACIDOSIS
     Dosage: 0.1UNIT/KG/H
     Route: 050
  4. SODIUM CHLORIDE. [Suspect]
     Active Substance: SODIUM CHLORIDE
     Indication: DIABETIC KETOACIDOSIS
     Dosage: 1000ML OVER 60 MINUTES.
     Route: 040

REACTIONS (2)
  - Acute respiratory distress syndrome [Recovering/Resolving]
  - Brain oedema [Recovered/Resolved]
